FAERS Safety Report 17574144 (Version 1)
Quarter: 2020Q1

REPORT INFORMATION
  Report Type: Spontaneous
  Country: BR (occurrence: BR)
  Receive Date: 20200323
  Receipt Date: 20200323
  Transmission Date: 20200409
  Serious: Yes (Disabling)
  Sender: FDA-Public Use
  Company Number: BR-TAKEDA-2020TUS015355

PATIENT
  Sex: Female

DRUGS (1)
  1. DEXILANT [Suspect]
     Active Substance: DEXLANSOPRAZOLE
     Indication: PRODUCT USED FOR UNKNOWN INDICATION
     Dosage: UNK
     Route: 048

REACTIONS (7)
  - Back pain [Unknown]
  - Arthralgia [Unknown]
  - Fall [Unknown]
  - Spinal pain [Unknown]
  - Mobility decreased [Unknown]
  - Hypoaesthesia [Unknown]
  - Muscular weakness [Unknown]
